FAERS Safety Report 6397959-2 (Version None)
Quarter: 2009Q4

REPORT INFORMATION
  Report Type: 
  Country: None (occurrence: None)
  Receive Date: 20091013
  Receipt Date: 20091005
  Transmission Date: 20100525
  Serious: Yes (Other)
  Sender: FDA-Public Use
  Company Number: US-WYE-H10543509

PATIENT
  Sex: Female
  Weight: 48.12 kg

DRUGS (10)
  1. PRISTIQ [Suspect]
     Indication: DEPRESSION
     Route: 048
     Dates: start: 20080601, end: 20081201
  2. PRISTIQ [Suspect]
     Route: 048
     Dates: start: 20081201, end: 20090201
  3. PRISTIQ [Suspect]
     Route: 048
     Dates: start: 20090201, end: 20090728
  4. PRISTIQ [Suspect]
     Route: 048
     Dates: start: 20090729, end: 20090803
  5. PRISTIQ [Suspect]
     Route: 048
     Dates: start: 20090804, end: 20090808
  6. PAXIL [Suspect]
     Dosage: UNKNOWN
     Route: 048
     Dates: start: 20090729
  7. LORAZEPAM [Concomitant]
     Dosage: 2 MG HS
  8. FOSAMAX [Concomitant]
     Dosage: UNKNOWN
  9. SYNTHROID [Concomitant]
     Dosage: UNKNOWN
  10. XANAX [Concomitant]
     Dosage: UNKNOWN

REACTIONS (5)
  - FEELING ABNORMAL [None]
  - HALLUCINATION, AUDITORY [None]
  - MACULAR DEGENERATION [None]
  - PALPITATIONS [None]
  - VITREOUS FLOATERS [None]
